FAERS Safety Report 16992573 (Version 1)
Quarter: 2019Q4

REPORT INFORMATION
  Report Type: Spontaneous
  Country: US (occurrence: US)
  Receive Date: 20190923
  Receipt Date: 20190923
  Transmission Date: 20200122
  Serious: No
  Sender: FDA-Public Use
  Company Number: None

PATIENT
  Age: 47 Year
  Sex: Male
  Weight: 122.47 kg

DRUGS (1)
  1. DILTIAZEM ER 180MG [Suspect]
     Active Substance: DILTIAZEM

REACTIONS (2)
  - Abdominal discomfort [None]
  - Drug intolerance [None]
